FAERS Safety Report 8668900 (Version 2)
Quarter: 2012Q4

REPORT INFORMATION
  Report Type: Report from Study
  Country: KR (occurrence: KR)
  Receive Date: 20120717
  Receipt Date: 20121022
  Transmission Date: 20130627
  Serious: Yes (Death, Hospitalization, Other)
  Sender: FDA-Public Use
  Company Number: PHHY2012KR060672

PATIENT
  Age: 43 Year
  Sex: Male

DRUGS (1)
  1. TELBIVUDINE [Suspect]
     Indication: HEPATITIS B
     Dosage: 600 mg, QD
     Route: 048
     Dates: start: 20110222, end: 20110623

REACTIONS (4)
  - Hepatocellular carcinoma [Fatal]
  - Malignant neoplasm progression [Fatal]
  - Acute hepatic failure [Unknown]
  - Oesophageal varices haemorrhage [Unknown]
